FAERS Safety Report 16240919 (Version 11)
Quarter: 2019Q3

REPORT INFORMATION
  Report Type: Spontaneous
  Country: US (occurrence: US)
  Receive Date: 20190425
  Receipt Date: 20190919
  Transmission Date: 20191004
  Serious: Yes (Other)
  Sender: FDA-Public Use
  Company Number: US-ALLERGAN-1917704US

PATIENT
  Sex: Female

DRUGS (1)
  1. OZURDEX [Suspect]
     Active Substance: DEXAMETHASONE
     Indication: NEOVASCULAR AGE-RELATED MACULAR DEGENERATION
     Dosage: 0.7 MG, SINGLE
     Route: 031
     Dates: start: 20181115, end: 20181115

REACTIONS (9)
  - Night blindness [Not Recovered/Not Resolved]
  - Macular degeneration [Not Recovered/Not Resolved]
  - Visual impairment [Not Recovered/Not Resolved]
  - Vision blurred [Not Recovered/Not Resolved]
  - Blindness unilateral [Not Recovered/Not Resolved]
  - Off label use [Unknown]
  - Optic ischaemic neuropathy [Not Recovered/Not Resolved]
  - Visual field defect [Not Recovered/Not Resolved]
  - Impaired driving ability [Not Recovered/Not Resolved]

NARRATIVE: CASE EVENT DATE: 20181115
